FAERS Safety Report 13053456 (Version 1)
Quarter: 2016Q4

REPORT INFORMATION
  Report Type: Spontaneous
  Country: FR (occurrence: FR)
  Receive Date: 20161222
  Receipt Date: 20161222
  Transmission Date: 20170207
  Serious: Yes (Hospitalization)
  Sender: FDA-Public Use
  Company Number: FR-009507513-1612FRA008935

PATIENT
  Age: 77 Year
  Sex: Female
  Weight: 51 kg

DRUGS (8)
  1. MERONEM [Suspect]
     Active Substance: MEROPENEM
     Dosage: 2 G, TID
     Route: 042
     Dates: start: 20161104, end: 20161113
  2. MERONEM [Suspect]
     Active Substance: MEROPENEM
     Indication: FEBRILE NEUTROPENIA
     Dosage: 2 G, BID
     Route: 042
     Dates: start: 20161113, end: 20161121
  3. ROVAMYCINE [Concomitant]
     Active Substance: SPIRAMYCIN
     Dosage: UNK
     Route: 042
     Dates: start: 20161115, end: 20161119
  4. CANCIDAS [Concomitant]
     Active Substance: CASPOFUNGIN ACETATE
     Dosage: UNK
     Route: 042
     Dates: start: 20161112, end: 20161121
  5. TAZOCILLINE [Concomitant]
     Active Substance: PIPERACILLIN SODIUM\TAZOBACTAM SODIUM
     Dosage: UNK
     Route: 042
     Dates: start: 20161022, end: 20161105
  6. NOXAFIL [Suspect]
     Active Substance: POSACONAZOLE
     Indication: ANTIFUNGAL PROPHYLAXIS
     Dosage: 300 MG, QD
     Route: 048
     Dates: start: 20161013, end: 20161115
  7. TAZOCILLINE [Concomitant]
     Active Substance: PIPERACILLIN SODIUM\TAZOBACTAM SODIUM
     Dosage: UNK
     Route: 042
     Dates: start: 20161121, end: 20161125
  8. TARGOCID [Concomitant]
     Active Substance: TEICOPLANIN
     Dosage: UNK
     Route: 042
     Dates: start: 20161117, end: 20161121

REACTIONS (2)
  - Cholestasis [Recovering/Resolving]
  - Hepatic encephalopathy [Recovered/Resolved]

NARRATIVE: CASE EVENT DATE: 20161108
